FAERS Safety Report 4537145-1 (Version None)
Quarter: 2004Q4

REPORT INFORMATION
  Report Type: 
  Country: None (occurrence: None)
  Receive Date: 20041223
  Receipt Date: 20041217
  Transmission Date: 20050328
  Serious: Yes (Other)
  Sender: FDA-Public Use
  Company Number: PHNU2004DE04244

PATIENT
  Sex: Male

DRUGS (5)
  1. SANDOSTATIN LAR [Suspect]
     Indication: NEUROENDOCRINE CARCINOMA
     Dosage: 20 MG, QMO
     Dates: start: 20041001
  2. MARCUMAR [Suspect]
     Dosage: 0.5 DF, TID
     Dates: end: 20040101
  3. DYTIDE H [Concomitant]
  4. CONCOR [Concomitant]
  5. SORTIS [Concomitant]

REACTIONS (3)
  - DRUG INTERACTION [None]
  - EPISTAXIS [None]
  - PROTHROMBIN TIME PROLONGED [None]
